FAERS Safety Report 14994444 (Version 1)
Quarter: 2018Q2

REPORT INFORMATION
  Report Type: Spontaneous
  Country: US (occurrence: US)
  Receive Date: 20180611
  Receipt Date: 20180611
  Transmission Date: 20180711
  Serious: No
  Sender: FDA-Public Use
  Company Number: US-BAYER-2018-102802

PATIENT
  Age: 57 Year
  Sex: Male
  Weight: 82 kg

DRUGS (4)
  1. CLARITIN [Suspect]
     Active Substance: LORATADINE
     Indication: HYPERSENSITIVITY
     Dosage: 2 DF, QD
     Route: 048
     Dates: start: 20180525, end: 20180525
  2. CENTRUM [MINERALS NOS,VITAMINS NOS] [Concomitant]
     Dosage: UNK
  3. CLARITIN [Suspect]
     Active Substance: LORATADINE
     Indication: NASOPHARYNGITIS
  4. TAMSULOSIN [Concomitant]
     Active Substance: TAMSULOSIN
     Dosage: 4 MG, UNK

REACTIONS (4)
  - Nasal obstruction [Recovered/Resolved]
  - Rhinorrhoea [Recovered/Resolved]
  - Drug effect decreased [Recovered/Resolved]
  - Extra dose administered [Recovered/Resolved]

NARRATIVE: CASE EVENT DATE: 20180525
